FAERS Safety Report 5124874-4 (Version None)
Quarter: 2006Q4

REPORT INFORMATION
  Report Type: 
  Country: None (occurrence: None)
  Receive Date: 20061011
  Receipt Date: 20061005
  Transmission Date: 20070319
  Serious: Yes (Hospitalization)
  Sender: FDA-Public Use
  Company Number: 2006UW19458

PATIENT
  Age: 80 Year
  Sex: Female

DRUGS (3)
  1. FASLODEX [Suspect]
     Indication: METASTASES TO CHEST WALL
     Route: 030
  2. TAMOXIFEN CITRATE [Concomitant]
     Indication: BREAST CANCER METASTATIC
     Route: 048
  3. ARIMIDEX [Concomitant]
     Indication: BREAST CANCER METASTATIC
     Route: 048

REACTIONS (1)
  - RENAL FAILURE ACUTE [None]
